FAERS Safety Report 6864980-7 (Version None)
Quarter: 2010Q3

REPORT INFORMATION
  Report Type: 
  Country: None (occurrence: None)
  Receive Date: 20100721
  Receipt Date: 20080411
  Transmission Date: 20110219
  Serious: No
  Sender: FDA-Public Use
  Company Number: US-PFIZER INC-2008033703

PATIENT
  Sex: Female
  Weight: 59.09 kg

DRUGS (9)
  1. CHANTIX [Suspect]
     Indication: SMOKING CESSATION THERAPY
     Dates: start: 20080327, end: 20080406
  2. METFORMIN [Concomitant]
  3. PLAVIX [Concomitant]
  4. CRESTOR [Concomitant]
  5. KLOR-CON [Concomitant]
  6. LASIX [Concomitant]
  7. COREG [Concomitant]
  8. ACETYLSALICYLIC ACID [Concomitant]
  9. AVAPRO [Concomitant]

REACTIONS (5)
  - ABDOMINAL PAIN [None]
  - ABDOMINAL PAIN UPPER [None]
  - ASTHENIA [None]
  - NAUSEA [None]
  - VOMITING [None]
